FAERS Safety Report 9983551 (Version 2)
Quarter: 2014Q1

REPORT INFORMATION
  Report Type: Spontaneous
  Country: FR (occurrence: FR)
  Receive Date: 20140307
  Receipt Date: 20140317
  Transmission Date: 20141002
  Serious: Yes (Hospitalization, Other)
  Sender: FDA-Public Use
  Company Number: PHHY2014FR024702

PATIENT
  Age: 53 Year
  Sex: Female
  Weight: 72 kg

DRUGS (3)
  1. TASIGNA [Suspect]
     Indication: CHRONIC MYELOID LEUKAEMIA
     Dosage: 800 MG, QD
     Route: 048
     Dates: start: 20080506, end: 201311
  2. TASIGNA [Suspect]
     Dosage: 600 MG, QD
     Route: 048
     Dates: end: 20131127
  3. ASPEGIC [Concomitant]
     Indication: PERIPHERAL ARTERIAL OCCLUSIVE DISEASE
     Dosage: 75 MG, UNK
     Route: 048
     Dates: start: 20130610

REACTIONS (7)
  - Pleural effusion [Recovered/Resolved]
  - Dyspnoea exertional [Recovered/Resolved]
  - Dyspnoea at rest [Recovered/Resolved]
  - Acute pulmonary oedema [Recovering/Resolving]
  - Chest discomfort [Unknown]
  - Cardiac failure [Recovering/Resolving]
  - Myocardial infarction [Not Recovered/Not Resolved]
